FAERS Safety Report 11307290 (Version 1)
Quarter: 2015Q3

REPORT INFORMATION
  Report Type: Spontaneous
  Country: US (occurrence: US)
  Receive Date: 20150723
  Receipt Date: 20150723
  Transmission Date: 20151125
  Serious: Yes (Hospitalization, Other)
  Sender: FDA-Public Use
  Company Number: US-JNJFOC-20150520141

PATIENT
  Age: 84 Year
  Sex: Female

DRUGS (8)
  1. CALCIUM [Concomitant]
     Active Substance: CALCIUM
  2. IMBRUVICA [Suspect]
     Active Substance: IBRUTINIB
     Indication: MANTLE CELL LYMPHOMA
     Dosage: EXPDT=01-OCT-2015
     Route: 048
     Dates: start: 20150501, end: 2015
  3. LASIX [Concomitant]
     Active Substance: FUROSEMIDE
  4. PREDNISONE. [Concomitant]
     Active Substance: PREDNISONE
  5. SPIRIVA [Concomitant]
     Active Substance: TIOTROPIUM BROMIDE MONOHYDRATE
  6. IMBRUVICA [Suspect]
     Active Substance: IBRUTINIB
     Indication: MANTLE CELL LYMPHOMA
     Route: 048
     Dates: start: 2015
  7. ALBUTEROL. [Concomitant]
     Active Substance: ALBUTEROL
  8. ADVAIR HFA [Concomitant]
     Active Substance: FLUTICASONE PROPIONATE\SALMETEROL XINAFOATE

REACTIONS (15)
  - Rash [Not Recovered/Not Resolved]
  - Renal disorder [Unknown]
  - Tongue dry [Unknown]
  - Skin lesion [Unknown]
  - Dysgeusia [Unknown]
  - White blood cell count increased [Unknown]
  - Malaise [Unknown]
  - Dysphagia [Unknown]
  - Blood potassium increased [Unknown]
  - Incorrect dose administered [Unknown]
  - Thirst [Unknown]
  - Dehydration [Unknown]
  - Weight decreased [Unknown]
  - Diarrhoea [Not Recovered/Not Resolved]
  - Blood potassium decreased [Recovered/Resolved]

NARRATIVE: CASE EVENT DATE: 2015
